FAERS Safety Report 5400605-5 (Version None)
Quarter: 2007Q3

REPORT INFORMATION
  Report Type: 
  Country: None (occurrence: None)
  Receive Date: 20070730
  Receipt Date: 20070126
  Transmission Date: 20080115
  Serious: No
  Sender: FDA-Public Use
  Company Number: A0637207A

PATIENT
  Age: 40 Year
  Sex: Male

DRUGS (1)
  1. RANITIDINE [Suspect]
     Dosage: 150MG TWICE PER DAY
     Route: 048

REACTIONS (2)
  - DRUG SCREEN POSITIVE [None]
  - URINE AMPHETAMINE POSITIVE [None]
